FAERS Safety Report 24396766 (Version 4)
Quarter: 2024Q4

REPORT INFORMATION
  Report Type: Report from Study
  Country: US (occurrence: US)
  Receive Date: 20241004
  Receipt Date: 20241016
  Transmission Date: 20250114
  Serious: Yes (Other)
  Sender: MERCK
  Company Number: US-009507513-2409USA006366

PATIENT
  Age: 39 Year
  Sex: Female
  Weight: 97.506 kg

DRUGS (6)
  1. SOTATERCEPT [Suspect]
     Active Substance: SOTATERCEPT
     Indication: Pulmonary arterial hypertension
     Dosage: STRENGTH: 45 MG, DOSE: 0.6 ML, EVERY 3 WEEKS
     Route: 058
     Dates: start: 202409
  2. WINREVAIR [Suspect]
     Active Substance: SOTATERCEPT-CSRK
     Indication: Pulmonary arterial hypertension
     Dosage: 1.4 ML, EVERY 3 WEEKS
     Route: 058
     Dates: start: 202409
  3. WINREVAIR [Suspect]
     Active Substance: SOTATERCEPT-CSRK
     Indication: Pulmonary arterial hypertension
     Dosage: 0.6 ML, ONE DOSE ONLY
     Route: 058
     Dates: start: 202409
  4. TADALAFIL [Concomitant]
     Active Substance: TADALAFIL
  5. AMBRISENTAN [Concomitant]
     Active Substance: AMBRISENTAN
  6. UPTRAVI [Concomitant]
     Active Substance: SELEXIPAG

REACTIONS (5)
  - Rectal haemorrhage [Unknown]
  - Nausea [Unknown]
  - Headache [Unknown]
  - Migraine [Unknown]
  - Nausea [Unknown]

NARRATIVE: CASE EVENT DATE: 20240901
